FAERS Safety Report 25142991 (Version 1)
Quarter: 2025Q2

REPORT INFORMATION
  Report Type: Spontaneous
  Country: NP (occurrence: NP)
  Receive Date: 20250401
  Receipt Date: 20250401
  Transmission Date: 20250716
  Serious: Yes (Death, Life-Threatening, Hospitalization)
  Sender: ACCORD
  Company Number: NP-MLMSERVICE-20250313-PI443568-00218-3

PATIENT
  Age: 62 Year
  Sex: Male

DRUGS (1)
  1. METHOTREXATE [Suspect]
     Active Substance: METHOTREXATE
     Indication: Rheumatoid arthritis

REACTIONS (7)
  - Accidental overdose [Fatal]
  - Pancytopenia [Unknown]
  - Haemorrhage intracranial [Fatal]
  - Skin lesion [Unknown]
  - Mouth ulceration [Unknown]
  - Papule [Unknown]
  - Skin plaque [Unknown]
